FAERS Safety Report 4768773-6 (Version None)
Quarter: 2005Q3

REPORT INFORMATION
  Report Type: 
  Country: None (occurrence: None)
  Receive Date: 20050913
  Receipt Date: 20050830
  Transmission Date: 20060218
  Serious: No
  Sender: FDA-Public Use
  Company Number: TAP2005Q01502

PATIENT
  Age: 37 Year
  Sex: Female
  Weight: 119.296 kg

DRUGS (8)
  1. PREVACID [Suspect]
     Indication: GASTROOESOPHAGEAL REFLUX DISEASE
     Dosage: SEE IMAGE
     Route: 048
     Dates: start: 20050101, end: 20050601
  2. PREVACID [Suspect]
     Indication: GASTROOESOPHAGEAL REFLUX DISEASE
     Dosage: SEE IMAGE
     Route: 048
     Dates: start: 20050601, end: 20050827
  3. PREVACID [Suspect]
     Indication: GASTROOESOPHAGEAL REFLUX DISEASE
     Dosage: SEE IMAGE
     Route: 048
     Dates: start: 20050101, end: 20050601
  4. PREVACID [Suspect]
     Indication: GASTROOESOPHAGEAL REFLUX DISEASE
     Dosage: SEE IMAGE
     Route: 048
     Dates: start: 20050601, end: 20050827
  5. RELEPAX (ELETRIPTAN HYDROBROMIDE)(40 MILLIGRAM, TABLETS) [Concomitant]
  6. ADVIL (IBUPROFEN ) (TABLETS) [Concomitant]
  7. EXCEDRIN MIGRAINE (THOMAPHYRIN N) (TABLETS) [Concomitant]
  8. MOBIC (MELOXICAM) (15 MILLIGRAM, TABELTS) [Concomitant]

REACTIONS (6)
  - ACTIVATED PARTIAL THROMBOPLASTIN TIME ABNORMAL [None]
  - COAGULATION FACTOR VIII LEVEL DECREASED [None]
  - ECCHYMOSIS [None]
  - HAEMATOMA [None]
  - LABORATORY TEST ABNORMAL [None]
  - VON WILLEBRAND'S DISEASE [None]
